FAERS Safety Report 13642242 (Version 1)
Quarter: 2017Q2

REPORT INFORMATION
  Report Type: Spontaneous
  Country: US (occurrence: US)
  Receive Date: 20170612
  Receipt Date: 20170612
  Transmission Date: 20170830
  Serious: Yes (Hospitalization)
  Sender: FDA-Public Use
  Company Number: US-NOVOPROD-548163

PATIENT
  Age: 58 Year
  Sex: Male
  Weight: 108.86 kg

DRUGS (2)
  1. NOVOLOG [Suspect]
     Active Substance: INSULIN ASPART
     Dosage: NOVOLOG GIVEN IN THE HOSPITAL
     Route: 058
  2. NOVOLOG [Suspect]
     Active Substance: INSULIN ASPART
     Indication: TYPE 1 DIABETES MELLITUS
     Dosage: SLIDING SCALE
     Route: 058

REACTIONS (2)
  - Diabetic ketoacidosis [Recovered/Resolved]
  - Product quality issue [Recovered/Resolved]

NARRATIVE: CASE EVENT DATE: 201705
